FAERS Safety Report 20416032 (Version 1)
Quarter: 2022Q1

REPORT INFORMATION
  Report Type: Spontaneous
  Country: US (occurrence: None)
  Receive Date: 20220201
  Receipt Date: 20220201
  Transmission Date: 20220424
  Serious: Yes (Life-Threatening, Disabling)
  Sender: FDA-Public Use
  Company Number: None

PATIENT
  Age: 45 Year
  Sex: Female
  Weight: 69.75 kg

DRUGS (1)
  1. TOPAMAX [Suspect]
     Active Substance: TOPIRAMATE
     Indication: Anxiety
     Route: 048

REACTIONS (5)
  - Renal impairment [None]
  - Product label issue [None]
  - Visual impairment [None]
  - Memory impairment [None]
  - Blood immunoglobulin M increased [None]

NARRATIVE: CASE EVENT DATE: 20220201
